FAERS Safety Report 7119459-4 (Version None)
Quarter: 2010Q4

REPORT INFORMATION
  Report Type: 
  Country: None (occurrence: None)
  Receive Date: 20101123
  Receipt Date: 20101117
  Transmission Date: 20110411
  Serious: Yes (Other)
  Sender: FDA-Public Use
  Company Number: GB-PFIZER INC-2010121557

PATIENT
  Age: 63 Year
  Sex: Male
  Weight: 86 kg

DRUGS (13)
  1. LIPITOR [Suspect]
     Indication: TYPE 2 DIABETES MELLITUS
     Dosage: 80 MG, 1X/DAY
     Route: 048
     Dates: start: 20100330
  2. LIPITOR [Suspect]
     Indication: BLOOD CHOLESTEROL INCREASED
  3. ACETYLSALICYLIC ACID [Concomitant]
     Dosage: 75 MG, 1X/DAY
     Dates: start: 19980301
  4. PAROXETINE HYDROCHLORIDE [Concomitant]
     Dosage: 40 MG, 1X/DAY
     Dates: start: 20010101
  5. METFORMIN HYDROCHLORIDE [Concomitant]
     Dosage: 1 G, 2X/DAY
     Dates: start: 20020501
  6. PEPTAC [Concomitant]
     Dosage: UNK
     Dates: start: 20050601
  7. GLYCERYL TRINITRATE [Concomitant]
     Dosage: 400 UG, UNK
  8. ISOSORBIDE MONONITRATE [Concomitant]
     Dosage: 60 MG, 1X/DAY
     Dates: start: 20090101
  9. RAMIPRIL [Concomitant]
     Dosage: 5 MG, 1X/DAY
     Dates: start: 20090301
  10. PARACETAMOL [Concomitant]
     Dosage: 1 G, 4X/DAY
     Dates: start: 20090501
  11. BISOPROLOL FUMARATE [Concomitant]
     Dosage: 10 MG, 1X/DAY
     Dates: start: 20090901
  12. LANSOPRAZOLE [Concomitant]
     Dosage: 30 MG, 1X/DAY
     Dates: start: 20030901
  13. NICORANDIL [Concomitant]
     Dosage: 20 MG, 2X/DAY
     Dates: start: 20060301

REACTIONS (1)
  - GLYCOSYLATED HAEMOGLOBIN INCREASED [None]
